FAERS Safety Report 5505441-7 (Version None)
Quarter: 2007Q4

REPORT INFORMATION
  Report Type: 
  Country: None (occurrence: None)
  Receive Date: 20071102
  Receipt Date: 20071026
  Transmission Date: 20080405
  Serious: Yes (Other)
  Sender: FDA-Public Use
  Company Number: JP-BRISTOL-MYERS SQUIBB COMPANY-13964424

PATIENT
  Sex: Male

DRUGS (5)
  1. IFOSFAMIDE [Suspect]
     Indication: TESTICULAR GERM CELL CANCER
     Dosage: 1.2 G/M2 ON DAYS 2 AND 6
     Route: 042
  2. ETOPOSIDE [Suspect]
     Indication: TESTICULAR GERM CELL CANCER
  3. BLEOMYCIN SULFATE [Suspect]
     Indication: TESTICULAR GERM CELL CANCER
  4. CISPLATIN [Suspect]
     Indication: TESTICULAR GERM CELL CANCER
     Dosage: DAYS 2 AND 6
     Route: 042
  5. PACLITAXEL [Suspect]
     Indication: TESTICULAR GERM CELL CANCER
     Dosage: 175 MG/M2 ON DAY 1
     Route: 042

REACTIONS (2)
  - NEUROPATHY PERIPHERAL [None]
  - NEUTROPHIL COUNT DECREASED [None]
